FAERS Safety Report 25328777 (Version 1)
Quarter: 2025Q2

REPORT INFORMATION
  Report Type: Spontaneous
  Country: US (occurrence: US)
  Receive Date: 20250519
  Receipt Date: 20250519
  Transmission Date: 20250717
  Serious: No
  Sender: ROCHE
  Company Number: US-ROCHE-10000280061

PATIENT
  Age: 30 Year
  Sex: Male

DRUGS (1)
  1. HEMLIBRA [Suspect]
     Active Substance: EMICIZUMAB-KXWH
     Indication: Factor VIII deficiency
     Dosage: STRENGTH- 105MG/0.7ML, 30MG/ML
     Route: 058
     Dates: start: 202311

REACTIONS (2)
  - Skin laceration [Unknown]
  - Nail bed bleeding [Recovered/Resolved]

NARRATIVE: CASE EVENT DATE: 20250422
